FAERS Safety Report 7617461-7 (Version None)
Quarter: 2011Q3

REPORT INFORMATION
  Report Type: 
  Country: None (occurrence: None)
  Receive Date: 20110718
  Receipt Date: 20110704
  Transmission Date: 20111222
  Serious: Yes (Other)
  Sender: FDA-Public Use
  Company Number: DE-MYLANLABS-2011S1013739

PATIENT
  Sex: Female
  Weight: 94 kg

DRUGS (4)
  1. PAROXETINE HCL [Suspect]
     Indication: ANXIETY DISORDER
     Dosage: 10 [MG/D ]
     Route: 048
     Dates: start: 20090527
  2. CITALOPRAM HYDROBROMIDE [Suspect]
     Indication: DEPRESSION
     Dosage: 15 [MG/D ]
     Route: 048
  3. ALPRAZOLAM [Concomitant]
     Indication: ANXIETY DISORDER
     Dosage: 0.25 [MG/D ]/ ONLY TWO TIMES
     Route: 048
     Dates: start: 20090527
  4. FOLIO [Concomitant]
     Indication: PROPHYLAXIS OF NEURAL TUBE DEFECT
     Dosage: 0.4 [MG/D ]
     Route: 048

REACTIONS (2)
  - MATERNAL EXPOSURE DURING PREGNANCY [None]
  - PRE-ECLAMPSIA [None]
